FAERS Safety Report 24348265 (Version 1)
Quarter: 2024Q3

REPORT INFORMATION
  Report Type: Spontaneous
  Country: US (occurrence: US)
  Receive Date: 20240923
  Receipt Date: 20240923
  Transmission Date: 20241017
  Serious: No
  Sender: APOTEX
  Company Number: US-APOTEX-2024AP010604

PATIENT
  Sex: Male

DRUGS (1)
  1. SIROLIMUS [Suspect]
     Active Substance: SIROLIMUS
     Indication: Routine health maintenance
     Dosage: 6.87 MILLIGRAM, Q.WK.
     Route: 065

REACTIONS (2)
  - Mouth ulceration [Unknown]
  - Off label use [Unknown]
